FAERS Safety Report 14350045 (Version 1)
Quarter: 2018Q1

REPORT INFORMATION
  Report Type: Spontaneous
  Country: US (occurrence: US)
  Receive Date: 20180103
  Receipt Date: 20180103
  Transmission Date: 20180509
  Serious: No
  Sender: FDA-Public Use
  Company Number: None

PATIENT
  Age: 33 Year
  Sex: Female
  Weight: 69.75 kg

DRUGS (3)
  1. COPAXONE [Suspect]
     Active Substance: GLATIRAMER ACETATE
     Indication: MULTIPLE SCLEROSIS
     Dosage: ?          OTHER FREQUENCY:3X WEEK;?
     Route: 058
     Dates: start: 20170820
  2. PRENATAL VITAMIN [Concomitant]
     Active Substance: VITAMINS
  3. METFORMIN [Concomitant]
     Active Substance: METFORMIN HYDROCHLORIDE

REACTIONS (4)
  - Chills [None]
  - Exposure during pregnancy [None]
  - Caesarean section [None]
  - Nausea [None]

NARRATIVE: CASE EVENT DATE: 20170827
